FAERS Safety Report 9694223 (Version 2)
Quarter: 2013Q4

REPORT INFORMATION
  Report Type: Spontaneous
  Country: US (occurrence: US)
  Receive Date: 20131118
  Receipt Date: 20131125
  Transmission Date: 20140711
  Serious: No
  Sender: FDA-Public Use
  Company Number: US-PFIZER INC-2013327340

PATIENT
  Age: 45 Year
  Sex: Male
  Weight: 83.9 kg

DRUGS (3)
  1. VIAGRA [Suspect]
     Indication: ERECTILE DYSFUNCTION
     Dosage: 100 MG, AS NEEDED
     Route: 048
  2. VIAGRA [Suspect]
     Dosage: UNKNOWN DOSE BY SPLITTING 100 MG TABLET IN HALF
     Dates: start: 2012
  3. PRAVASTATIN [Concomitant]
     Indication: BLOOD CHOLESTEROL ABNORMAL
     Dosage: 40 MG, DAILY

REACTIONS (3)
  - Drug ineffective [Unknown]
  - Product taste abnormal [Unknown]
  - Suspected counterfeit product [Unknown]
